FAERS Safety Report 17181916 (Version 1)
Quarter: 2019Q4

REPORT INFORMATION
  Report Type: Spontaneous
  Country: SE (occurrence: SE)
  Receive Date: 20191220
  Receipt Date: 20191220
  Transmission Date: 20200122
  Serious: Yes (Hospitalization)
  Sender: FDA-Public Use
  Company Number: SE-TEVA-2019-SE-1154008

PATIENT
  Age: 49 Year
  Sex: Female

DRUGS (4)
  1. MIRTAZAPINE. [Suspect]
     Active Substance: MIRTAZAPINE
     Dosage: 480 MG, 32X15 MG
     Route: 048
     Dates: start: 20181216, end: 20181216
  2. ZOPICLONE [Suspect]
     Active Substance: ZOPICLONE
     Dosage: 150 MG, 20X7.5 MG
     Route: 048
     Dates: start: 20181216, end: 20181216
  3. DULOXETINE. [Suspect]
     Active Substance: DULOXETINE
     Dosage: 1.8 GM, 30X60 MG
     Route: 048
     Dates: start: 20181216, end: 20181216
  4. PROPAVAN [Suspect]
     Active Substance: PROPIOMAZINE
     Dosage: 1000-1250 MG
     Route: 048
     Dates: start: 20181216, end: 20181216

REACTIONS (4)
  - Intentional overdose [Unknown]
  - Tachycardia [Unknown]
  - Intentional self-injury [Unknown]
  - Depressed level of consciousness [Unknown]

NARRATIVE: CASE EVENT DATE: 20181216
